FAERS Safety Report 14647293 (Version 1)
Quarter: 2018Q1

REPORT INFORMATION
  Report Type: Spontaneous
  Country: BE (occurrence: BE)
  Receive Date: 20180316
  Receipt Date: 20180316
  Transmission Date: 20180509
  Serious: Yes (Life-Threatening, Hospitalization, Other)
  Sender: FDA-Public Use
  Company Number: BE-MYLANLABS-2018M1016353

PATIENT
  Age: 71 Year
  Sex: Male
  Weight: 73 kg

DRUGS (3)
  1. DIPRIVAN [Concomitant]
     Active Substance: PROPOFOL
     Indication: GENERAL ANAESTHESIA
     Dosage: 4.0 MICROG/ML
     Route: 041
  2. REMIFENTANIL [Suspect]
     Active Substance: REMIFENTANIL
     Indication: GENERAL ANAESTHESIA
     Dosage: INADVERTENT BOLUS INJECTION OF 20 ML (2 MG) REMIFENTANIL
     Route: 040
  3. PLASMA-LYTE A [Concomitant]
     Active Substance: MAGNESIUM CHLORIDE\POTASSIUM CHLORIDE\SODIUM ACETATE\SODIUM CHLORIDE\SODIUM GLUCONATE
     Indication: PRODUCT USED FOR UNKNOWN INDICATION
     Dosage: UNK
     Route: 050

REACTIONS (9)
  - Unresponsive to stimuli [Recovered/Resolved]
  - Muscle spasticity [Recovered/Resolved]
  - Accidental overdose [Recovered/Resolved]
  - Heart rate decreased [Recovered/Resolved]
  - Apnoea [Recovered/Resolved]
  - Generalised tonic-clonic seizure [Recovered/Resolved]
  - Muscle rigidity [Recovered/Resolved]
  - Oxygen saturation decreased [Recovered/Resolved]
  - Device use error [Recovered/Resolved]
